FAERS Safety Report 23200881 (Version 2)
Quarter: 2025Q2

REPORT INFORMATION
  Report Type: Report from Study
  Country: FR (occurrence: FR)
  Receive Date: 20231118
  Receipt Date: 20250505
  Transmission Date: 20250717
  Serious: Yes (Other)
  Sender: AUROBINDO
  Company Number: FR-RENAUDINFR-2023000844

PATIENT
  Age: 31 Year
  Sex: Female
  Weight: 89 kg

DRUGS (1)
  1. LIDOCAINE [Suspect]
     Active Substance: LIDOCAINE
     Indication: Anaesthesia
     Route: 008

REACTIONS (1)
  - Generalised tonic-clonic seizure [Unknown]
